FAERS Safety Report 5507764-4 (Version None)
Quarter: 2007Q4

REPORT INFORMATION
  Report Type: 
  Country: None (occurrence: None)
  Receive Date: 20071106
  Receipt Date: 20071025
  Transmission Date: 20080405
  Serious: Yes (Hospitalization)
  Sender: FDA-Public Use
  Company Number: US-AMGEN-STX249685

PATIENT
  Sex: Female

DRUGS (1)
  1. ENBREL [Suspect]
     Indication: PUSTULAR PSORIASIS
     Route: 058
     Dates: start: 20060101

REACTIONS (8)
  - BLOOD PRESSURE DECREASED [None]
  - BONE GRAFT [None]
  - FALL [None]
  - FEMUR FRACTURE [None]
  - FRACTURE MALUNION [None]
  - PAIN IN EXTREMITY [None]
  - PUSTULAR PSORIASIS [None]
  - WALKING DISABILITY [None]
